FAERS Safety Report 13674944 (Version 3)
Quarter: 2017Q4

REPORT INFORMATION
  Report Type: Report from Study
  Country: CA (occurrence: CA)
  Receive Date: 20170621
  Receipt Date: 20171108
  Transmission Date: 20180320
  Serious: Yes (Hospitalization)
  Sender: FDA-Public Use
  Company Number: PHHY2017CA054165

PATIENT
  Age: 48 Year
  Sex: Female

DRUGS (4)
  1. DEFEROXAMINE [Suspect]
     Active Substance: DEFEROXAMINE\DEFEROXAMINE MESYLATE
     Indication: CONGENITAL APLASTIC ANAEMIA
     Route: 042
  2. EXJADE [Suspect]
     Active Substance: DEFERASIROX
     Indication: CONGENITAL APLASTIC ANAEMIA
     Route: 048
     Dates: start: 201011
  3. JADENU [Suspect]
     Active Substance: DEFERASIROX
     Indication: CONGENITAL APLASTIC ANAEMIA
     Dosage: 900 MG, QD
     Route: 048
  4. DEFERASIROX [Suspect]
     Active Substance: DEFERASIROX
     Indication: CONGENITAL APLASTIC ANAEMIA
     Dosage: 1500 MG, BID
     Route: 048

REACTIONS (6)
  - Memory impairment [Unknown]
  - Drug intolerance [Unknown]
  - Malaise [Unknown]
  - Liver iron concentration increased [Unknown]
  - Abdominal discomfort [Unknown]
  - Serum ferritin increased [Unknown]

NARRATIVE: CASE EVENT DATE: 20161110
